FAERS Safety Report 13088062 (Version 1)
Quarter: 2017Q1

REPORT INFORMATION
  Report Type: Spontaneous
  Country: US (occurrence: US)
  Receive Date: 20170104
  Receipt Date: 20170104
  Transmission Date: 20170428
  Serious: Yes (Hospitalization)
  Sender: FDA-Public Use
  Company Number: None

PATIENT
  Age: 34 Year
  Sex: Female
  Weight: 110.5 kg

DRUGS (12)
  1. GABAPENTIN. [Concomitant]
     Active Substance: GABAPENTIN
  2. CELEXA [Concomitant]
     Active Substance: CITALOPRAM HYDROBROMIDE
  3. MULTIVITAMIN [Concomitant]
     Active Substance: VITAMINS
  4. KEPPRA [Concomitant]
     Active Substance: LEVETIRACETAM
  5. XANAX [Concomitant]
     Active Substance: ALPRAZOLAM
  6. LISINOPRIL. [Concomitant]
     Active Substance: LISINOPRIL
  7. TEMOVATE [Concomitant]
     Active Substance: CLOBETASOL PROPIONATE
  8. PEMBROLIZUMAB. [Suspect]
     Active Substance: PEMBROLIZUMAB
     Indication: METASTASES TO CENTRAL NERVOUS SYSTEM
     Route: 042
     Dates: start: 20161215
  9. UREA. [Concomitant]
     Active Substance: UREA
  10. PEMBROLIZUMAB. [Suspect]
     Active Substance: PEMBROLIZUMAB
     Indication: BREAST CANCER METASTATIC
     Route: 042
     Dates: start: 20161215
  11. BACTRIM [Concomitant]
     Active Substance: SULFAMETHOXAZOLE\TRIMETHOPRIM
  12. VITAMIN B12 [Concomitant]
     Active Substance: CYANOCOBALAMIN

REACTIONS (7)
  - Malignant neoplasm progression [None]
  - Muscle twitching [None]
  - Muscular weakness [None]
  - Aphasia [None]
  - Seizure [None]
  - Coordination abnormal [None]
  - Oedema [None]

NARRATIVE: CASE EVENT DATE: 20161231
